FAERS Safety Report 7552883-4 (Version None)
Quarter: 2011Q2

REPORT INFORMATION
  Report Type: 
  Country: None (occurrence: None)
  Receive Date: 20110616
  Receipt Date: 20110207
  Transmission Date: 20111010
  Serious: No
  Sender: FDA-Public Use
  Company Number: US-ASTRAZENECA-2011SE06978

PATIENT
  Age: 23454 Day
  Sex: Female
  Weight: 59 kg

DRUGS (2)
  1. NATURAL THYROID MEDICATION [Concomitant]
     Indication: HYPOTHYROIDISM
  2. FASLODEX [Suspect]
     Indication: NEOPLASM MALIGNANT
     Route: 030
     Dates: start: 20110118

REACTIONS (4)
  - INJECTION SITE SWELLING [None]
  - LOSS OF CONSCIOUSNESS [None]
  - INJECTION SITE MASS [None]
  - INJECTION SITE PRURITUS [None]
